FAERS Safety Report 5235797-4 (Version None)
Quarter: 2007Q1

REPORT INFORMATION
  Report Type: 
  Country: None (occurrence: None)
  Receive Date: 20061208
  Receipt Date: 20060731
  Transmission Date: 20070707
  Serious: Yes (Other)
  Sender: FDA-Public Use
  Company Number: 2006UW13192

PATIENT
  Age: 49 Year
  Sex: Female
  Weight: 63.502 kg

DRUGS (3)
  1. CRESTOR [Suspect]
     Indication: HYPERLIPIDAEMIA
     Dosage: 5 MG QD PO
     Route: 048
     Dates: start: 20060616, end: 20060621
  2. ENALAPRIL MALEATE [Concomitant]
  3. CENTRUM [Concomitant]

REACTIONS (3)
  - BACK PAIN [None]
  - DYSPNOEA [None]
  - PAIN IN EXTREMITY [None]
